FAERS Safety Report 15113375 (Version 1)
Quarter: 2018Q3

REPORT INFORMATION
  Report Type: Spontaneous
  Country: ES (occurrence: ES)
  Receive Date: 20180706
  Receipt Date: 20180706
  Transmission Date: 20181010
  Serious: Yes (Hospitalization)
  Sender: FDA-Public Use
  Company Number: ES-SUN PHARMACEUTICAL INDUSTRIES LTD-2018RR-177568

PATIENT
  Age: 73 Year
  Sex: Male

DRUGS (2)
  1. OXALIPLATIN. [Suspect]
     Active Substance: OXALIPLATIN
     Indication: COLON CANCER
     Dosage: 192 MG (CICLO 2) ()
     Route: 042
     Dates: start: 20170922, end: 20170922
  2. CAPECITABINA (1224A) [Suspect]
     Active Substance: CAPECITABINE
     Indication: COLON CANCER
     Dosage: 500 MG 4?0?3
     Route: 048
     Dates: start: 20170923, end: 20171007

REACTIONS (4)
  - Hypokalaemia [Recovered/Resolved with Sequelae]
  - Vomiting [Recovered/Resolved with Sequelae]
  - Hypocalcaemia [Recovered/Resolved with Sequelae]
  - Hypomagnesaemia [Recovered/Resolved with Sequelae]

NARRATIVE: CASE EVENT DATE: 201710
